FAERS Safety Report 11504226 (Version 1)
Quarter: 2015Q3

REPORT INFORMATION
  Report Type: Spontaneous
  Country: FR (occurrence: FR)
  Receive Date: 20150914
  Receipt Date: 20150914
  Transmission Date: 20151125
  Serious: Yes (Disabling, Other)
  Sender: FDA-Public Use
  Company Number: FR-DSJP-DSE-2015-127897

PATIENT

DRUGS (1)
  1. SEVIKAR 40 MG/ 5 MG [Suspect]
     Active Substance: AMLODIPINE BESYLATE\OLMESARTAN MEDOXOMIL
     Indication: HYPERTENSION
     Dosage: 40/5 MG, QD
     Route: 048
     Dates: start: 20131113, end: 201507

REACTIONS (5)
  - Asthenia [Recovered/Resolved]
  - Rectal haemorrhage [Recovered/Resolved]
  - Diarrhoea [Recovered/Resolved]
  - Weight decreased [Recovered/Resolved]
  - Eosinophilic colitis [Unknown]

NARRATIVE: CASE EVENT DATE: 201506
